FAERS Safety Report 8504059-1 (Version None)
Quarter: 2012Q3

REPORT INFORMATION
  Report Type: 
  Country: None (occurrence: None)
  Receive Date: 20120711
  Receipt Date: 20120706
  Transmission Date: 20120928
  Serious: No
  Sender: FDA-Public Use
  Company Number: PHHY2012JP035253

PATIENT
  Age: 28 Year
  Sex: Female

DRUGS (1)
  1. NEORAL [Suspect]
     Indication: PSORIASIS
     Dosage: 2 DF, DAILY
     Route: 048
     Dates: end: 20120401

REACTIONS (1)
  - MATERNAL EXPOSURE DURING PREGNANCY [None]
